FAERS Safety Report 4911423-6 (Version None)
Quarter: 2006Q1

REPORT INFORMATION
  Report Type: 
  Country: None (occurrence: None)
  Receive Date: 20060213
  Receipt Date: 20060201
  Transmission Date: 20060701
  Serious: Yes (Other)
  Sender: FDA-Public Use
  Company Number: 2006016656

PATIENT
  Age: 43 Year
  Sex: Female
  Weight: 107.9561 kg

DRUGS (5)
  1. PROCARDIA XL [Suspect]
     Indication: HYPERTENSION
     Dosage: 60 MG (60 MG, 1 IN 1 D), ORAL
     Route: 048
     Dates: end: 20060118
  2. CADUET [Suspect]
     Indication: BLOOD CHOLESTEROL INCREASED
     Dosage: 5/20 MILLIGRAM (1 IN 1 D), ORAL
     Route: 048
     Dates: start: 20060118
  3. CADUET [Suspect]
     Indication: HYPERTENSION
     Dosage: 5/20 MILLIGRAM (1 IN 1 D), ORAL
     Route: 048
     Dates: start: 20060118
  4. ZOLOFT [Concomitant]
  5. DYAZIDE [Concomitant]

REACTIONS (9)
  - AMNESIA [None]
  - ASTHMA [None]
  - BLOOD CHOLESTEROL INCREASED [None]
  - BLOOD PRESSURE INCREASED [None]
  - CHRONIC OBSTRUCTIVE PULMONARY DISEASE [None]
  - EMPHYSEMA [None]
  - ORAL INTAKE REDUCED [None]
  - SINUS DISORDER [None]
  - WEIGHT DECREASED [None]
